FAERS Safety Report 25317264 (Version 1)
Quarter: 2025Q2

REPORT INFORMATION
  Report Type: Spontaneous
  Country: AU (occurrence: AU)
  Receive Date: 20250515
  Receipt Date: 20250515
  Transmission Date: 20250717
  Serious: Yes (Other)
  Sender: ACCORD
  Company Number: None

PATIENT
  Age: 77 Year
  Sex: Female

DRUGS (16)
  1. FULVESTRANT [Suspect]
     Active Substance: FULVESTRANT
     Indication: Product used for unknown indication
  2. ABEMACICLIB [Suspect]
     Active Substance: ABEMACICLIB
     Indication: Product used for unknown indication
  3. METOPROLOL [Concomitant]
     Active Substance: METOPROLOL
  4. SENNA [Concomitant]
     Active Substance: SENNOSIDES
  5. APIXABAN [Concomitant]
     Active Substance: APIXABAN
  6. ATORVASTATIN CALCIUM [Concomitant]
     Active Substance: ATORVASTATIN CALCIUM
  7. DOCUSATE SODIUM [Concomitant]
     Active Substance: DOCUSATE SODIUM
  8. EZETIMIBE [Concomitant]
     Active Substance: EZETIMIBE
  9. FENTANYL [Concomitant]
     Active Substance: FENTANYL
  10. BUTYLSCOPOLAMINE BROMIDE [Concomitant]
     Active Substance: BUTYLSCOPOLAMINE BROMIDE
  11. METOCLOPRAMIDE [Concomitant]
     Active Substance: METOCLOPRAMIDE
  12. MIDAZOLAM [Concomitant]
     Active Substance: MIDAZOLAM
  13. ONDANSETRON [Concomitant]
     Active Substance: ONDANSETRON
  14. OXYCODONE HYDROCHLORIDE [Concomitant]
     Active Substance: OXYCODONE HYDROCHLORIDE
  15. ACETAMINOPHEN [Concomitant]
     Active Substance: ACETAMINOPHEN
  16. TAPENTADOL [Concomitant]
     Active Substance: TAPENTADOL

REACTIONS (18)
  - Cachexia [Unknown]
  - Intestinal obstruction [Unknown]
  - Pulmonary sepsis [Unknown]
  - Malignant neoplasm progression [Unknown]
  - Pneumonia aspiration [Unknown]
  - Agitation [Unknown]
  - Blood creatinine increased [Unknown]
  - Blood lactate dehydrogenase increased [Unknown]
  - Cardiac disorder [Unknown]
  - Dysphagia [Unknown]
  - Dyspnoea [Unknown]
  - Eating disorder [Unknown]
  - Fatigue [Unknown]
  - Haemoglobin decreased [Unknown]
  - Hypercalcaemia [Unknown]
  - Moaning [Unknown]
  - Musculoskeletal chest pain [Unknown]
  - Procedural haemorrhage [Unknown]
